FAERS Safety Report 25076587 (Version 2)
Quarter: 2025Q4

REPORT INFORMATION
  Report Type: Report from Study
  Country: US (occurrence: US)
  Receive Date: 20250313
  Receipt Date: 20251024
  Transmission Date: 20260118
  Serious: No
  Sender: MERCK SHARP & DOHME LLC
  Company Number: US-009507513-2263739

PATIENT
  Sex: Male
  Weight: 74.8 kg

DRUGS (25)
  1. WINREVAIR [Suspect]
     Active Substance: SOTATERCEPT-CSRK
     Indication: Pulmonary arterial hypertension
     Dosage: 1.1MLS/Q3W
     Route: 058
  2. WINREVAIR [Suspect]
     Active Substance: SOTATERCEPT-CSRK
     Indication: Product used for unknown indication
     Dates: start: 20250109
  3. WINREVAIR [Suspect]
     Active Substance: SOTATERCEPT-CSRK
  4. WINREVAIR [Suspect]
     Active Substance: SOTATERCEPT-CSRK
  5. ORENITRAM [Suspect]
     Active Substance: TREPROSTINIL
     Indication: Pulmonary arterial hypertension
     Route: 048
     Dates: start: 20230908
  6. ORENITRAM [Suspect]
     Active Substance: TREPROSTINIL
     Indication: Pulmonary arterial hypertension
     Dosage: TIME INTERVAL: 0.33333333 DAYS: 1.375 MG, ORAL (PO), THREE TIMES A DAY (TID)
     Route: 048
  7. ATORVASTATIN CALCIUM [Concomitant]
     Active Substance: ATORVASTATIN CALCIUM
  8. ALBUTEROL SULFATE [Concomitant]
     Active Substance: ALBUTEROL SULFATE
  9. GABAPENTIN [Concomitant]
     Active Substance: GABAPENTIN
  10. FLONASE ALLERGY RELIEF [Concomitant]
     Active Substance: FLUTICASONE PROPIONATE
  11. HYDROXYCHLOROQUINE SULFATE [Concomitant]
     Active Substance: HYDROXYCHLOROQUINE SULFATE
  12. OPSUMIT [Concomitant]
     Active Substance: MACITENTAN
  13. OXYGEN [Concomitant]
     Active Substance: OXYGEN
  14. REVATIO [Concomitant]
     Active Substance: SILDENAFIL CITRATE
  15. MONTELUKAST SODIUM [Concomitant]
     Active Substance: MONTELUKAST SODIUM
  16. ASPIRIN [Concomitant]
     Active Substance: ASPIRIN
  17. OMEPRAZOLE [Concomitant]
     Active Substance: OMEPRAZOLE
  18. IBUPROFEN [Concomitant]
     Active Substance: IBUPROFEN
  19. SYMBICORT [Concomitant]
     Active Substance: BUDESONIDE\FORMOTEROL FUMARATE DIHYDRATE
  20. TORSEMIDE [Concomitant]
     Active Substance: TORSEMIDE
  21. HYDROCHLOROTHIAZIDE [Concomitant]
     Active Substance: HYDROCHLOROTHIAZIDE
  22. ALBUTEROL SULFATE [Concomitant]
     Active Substance: ALBUTEROL SULFATE
  23. METOLAZONE [Concomitant]
     Active Substance: METOLAZONE
  24. FLUTICASONE PROPIONATE, [Concomitant]
  25. ZYRTEC [Concomitant]
     Active Substance: CETIRIZINE HYDROCHLORIDE

REACTIONS (6)
  - Heart rate decreased [Recovered/Resolved]
  - Device leakage [Unknown]
  - Nausea [Recovered/Resolved]
  - Dizziness [Unknown]
  - Exposure via skin contact [Unknown]
  - Accidental exposure to product [Unknown]

NARRATIVE: CASE EVENT DATE: 20250101
